FAERS Safety Report 6668093-9 (Version None)
Quarter: 2010Q2

REPORT INFORMATION
  Report Type: 
  Country: None (occurrence: None)
  Receive Date: 20100406
  Receipt Date: 20100323
  Transmission Date: 20101027
  Serious: Yes (Hospitalization)
  Sender: FDA-Public Use
  Company Number: HR-RANBAXY-2010US-32066

PATIENT

DRUGS (8)
  1. CEPHALEXIN [Suspect]
     Indication: ESCHERICHIA INFECTION
     Dosage: 1 G X 2
  2. ATENOLOL [Suspect]
     Indication: HYPERTENSION
     Dosage: 25 MG X 1
     Route: 065
  3. NITROFURANTOIN [Suspect]
     Indication: DYSURIA
     Dosage: 100 MG, QD
     Route: 065
  4. NITROFURANTOIN [Suspect]
     Indication: ENTEROCOCCAL INFECTION
  5. OXYTOCIN (NOVARTIS PHARMA STEIN AG, SWITZERLAND) [Concomitant]
     Indication: INDUCED LABOUR
     Dosage: 5 IU OF OXYTOCIN IN 500 ML PHYSIOLOGICAL SALINE AT 30 ML/ H
     Route: 065
  6. ALFENTANIL (JANSSEN PHARMACEUTICA NV, BELGIUM) [Concomitant]
     Indication: ANAESTHESIA
     Dosage: 1X1 MG
     Route: 042
  7. PROPOFOL 1 % (FRESENIUS KABI AUSTRIA GMBH, AUSTRIA) [Concomitant]
     Indication: ANAESTHESIA
     Dosage: 200 MG X 1
     Route: 042
  8. AMOXICILLIN (PLIVA HRVATSKA, CROATIA) [Concomitant]
     Indication: PROPHYLAXIS
     Dosage: 1.2 MG X 1
     Route: 042

REACTIONS (2)
  - DRUG EXPOSURE DURING PREGNANCY [None]
  - HEPATITIS TOXIC [None]
